FAERS Safety Report 5298797-4 (Version None)
Quarter: 2007Q2

REPORT INFORMATION
  Report Type: 
  Country: None (occurrence: None)
  Receive Date: 20070411
  Receipt Date: 20070411
  Transmission Date: 20071010
  Serious: Yes (Hospitalization)
  Sender: FDA-Public Use
  Company Number: None

PATIENT
  Age: 55 Year
  Sex: Female
  Weight: 118.4 kg

DRUGS (2)
  1. ROSIGLITAZONE [Suspect]
     Indication: DIABETES MELLITUS
     Dosage: 8MG, 8MG QD, ORAL
     Route: 048
     Dates: start: 20070118, end: 20070227
  2. INSULIN [Concomitant]

REACTIONS (1)
  - HYPOGLYCAEMIA [None]
